FAERS Safety Report 6886383-1 (Version None)
Quarter: 2010Q3

REPORT INFORMATION
  Report Type: 
  Country: None (occurrence: None)
  Receive Date: 20100729
  Receipt Date: 20090501
  Transmission Date: 20110219
  Serious: No
  Sender: FDA-Public Use
  Company Number: US-PFIZER INC-2009185229

PATIENT
  Sex: Female
  Weight: 59 kg

DRUGS (9)
  1. CORTEF [Suspect]
     Dosage: 5 MG, 2X/DAY
     Route: 048
     Dates: start: 19991201
  2. THYROID TAB [Concomitant]
     Dosage: UNK
  3. ESTRADIOL [Concomitant]
     Dosage: UNK
  4. PROMETRIUM [Concomitant]
     Dosage: UNK
  5. GABAPENTIN [Concomitant]
     Dosage: UNK
  6. TRAZODONE [Concomitant]
     Dosage: UNK
  7. ARICEPT [Concomitant]
     Dosage: UNK
  8. ALEVE (CAPLET) [Concomitant]
     Dosage: UNK
  9. ACETAMINOPHEN [Concomitant]

REACTIONS (3)
  - DRUG INEFFECTIVE [None]
  - DYSGEUSIA [None]
  - FEELING ABNORMAL [None]
